FAERS Safety Report 6179931-0 (Version None)
Quarter: 2009Q2

REPORT INFORMATION
  Report Type: 
  Country: None (occurrence: None)
  Receive Date: 20090501
  Receipt Date: 20090420
  Transmission Date: 20091009
  Serious: Yes (Hospitalization)
  Sender: FDA-Public Use
  Company Number: 2009AL002320

PATIENT
  Age: 53 Year
  Sex: Male
  Weight: 83.9154 kg

DRUGS (10)
  1. OXYCODONE HCL [Suspect]
     Indication: PAIN MANAGEMENT
     Dosage: Q4H
     Dates: start: 20080101
  2. SUNITINIB [Concomitant]
  3. PACLITAXEL [Concomitant]
  4. ZOFRAN [Concomitant]
  5. COMPAZINE [Concomitant]
  6. CARBOPLATIN [Concomitant]
  7. SU-011,248 [Concomitant]
  8. OXYCONTIN [Concomitant]
  9. DURAGESIC-100 [Concomitant]
  10. ATIVAN [Concomitant]

REACTIONS (3)
  - BLOOD UREA INCREASED [None]
  - CONFUSIONAL STATE [None]
  - MENTAL STATUS CHANGES [None]
